FAERS Safety Report 9815946 (Version 1)
Quarter: 2014Q1

REPORT INFORMATION
  Report Type: Spontaneous
  Country: US (occurrence: US)
  Receive Date: 20140114
  Receipt Date: 20140114
  Transmission Date: 20141002
  Serious: No
  Sender: FDA-Public Use
  Company Number: US-009507513-1401USA005289

PATIENT
  Sex: Female

DRUGS (2)
  1. NEXPLANON [Suspect]
     Indication: CONTRACEPTION
     Dosage: PLACED IN ENGLAND
     Route: 059
     Dates: end: 20121228
  2. NEXPLANON [Suspect]
     Dosage: IN THE ARM, ^AS DIRECTED^
     Route: 059
     Dates: start: 20121228, end: 20140103

REACTIONS (1)
  - Alopecia [Unknown]
